FAERS Safety Report 13775016 (Version 1)
Quarter: 2017Q3

REPORT INFORMATION
  Report Type: Spontaneous
  Country: FR (occurrence: FR)
  Receive Date: 20170720
  Receipt Date: 20170720
  Transmission Date: 20171127
  Serious: Yes (Other)
  Sender: FDA-Public Use
  Company Number: FR-ACORDA-ACO_140065_2017

PATIENT
  Age: 25 Year
  Sex: Female

DRUGS (3)
  1. QUTENZA [Suspect]
     Active Substance: CAPSAICIN
     Dosage: TWO THIRDS OF A PATCH EVERY 3 MONTHS
     Route: 065
     Dates: start: 20170704
  2. QUTENZA [Suspect]
     Active Substance: CAPSAICIN
     Dosage: TWO THIRDS OF A PATCH EVERY 3 MONTHS
     Route: 065
     Dates: start: 20170410
  3. QUTENZA [Suspect]
     Active Substance: CAPSAICIN
     Indication: NEURALGIA
     Dosage: TWO THIRDS OF A PATCH EVERY 3 MONTHS
     Route: 065
     Dates: start: 20170103

REACTIONS (2)
  - Application site burn [Recovering/Resolving]
  - Exposure during pregnancy [Unknown]

NARRATIVE: CASE EVENT DATE: 20170704
